FAERS Safety Report 4880225-1 (Version None)
Quarter: 2006Q1

REPORT INFORMATION
  Report Type: 
  Country: None (occurrence: None)
  Receive Date: 20060111
  Receipt Date: 20051229
  Transmission Date: 20060701
  Serious: Yes (Other)
  Sender: FDA-Public Use
  Company Number: 2006000049

PATIENT
  Age: 51 Year
  Sex: Female

DRUGS (5)
  1. ELLENCE [Suspect]
     Indication: BREAST CANCER
     Dosage: CYCLIC
     Dates: start: 20051228
  2. ALOXI (PALNOSETRON) [Concomitant]
  3. DECADRON [Concomitant]
  4. FLUOROURACIL [Concomitant]
  5. CYTOXAN [Concomitant]

REACTIONS (1)
  - PNEUMOTHORAX [None]
